FAERS Safety Report 5441203-7 (Version None)
Quarter: 2007Q3

REPORT INFORMATION
  Report Type: 
  Country: None (occurrence: None)
  Receive Date: 20070901
  Receipt Date: 20070821
  Transmission Date: 20080115
  Serious: Yes (Other)
  Sender: FDA-Public Use
  Company Number: US-PFIZER INC-2007070654

PATIENT
  Sex: Male
  Weight: 90.7 kg

DRUGS (1)
  1. DILANTIN [Suspect]
     Indication: DIABETIC NEUROPATHY
     Dates: start: 20070820, end: 20070820

REACTIONS (1)
  - ASTHENIA [None]
